FAERS Safety Report 16734830 (Version 2)
Quarter: 2019Q3

REPORT INFORMATION
  Report Type: Spontaneous
  Country: JP (occurrence: JP)
  Receive Date: 20190823
  Receipt Date: 20190912
  Transmission Date: 20191005
  Serious: Yes (Hospitalization, Other)
  Sender: FDA-Public Use
  Company Number: JP-009507513-1908JPN001985J

PATIENT
  Age: 6 Decade
  Sex: Female

DRUGS (2)
  1. BELSOMRA [Suspect]
     Active Substance: SUVOREXANT
     Indication: INSOMNIA
     Dosage: 20 MILLIGRAM, QD
     Route: 048
     Dates: start: 201907, end: 20190809
  2. BELSOMRA [Suspect]
     Active Substance: SUVOREXANT
     Dosage: UNK, OVERDOSE
     Route: 048
     Dates: start: 20190810, end: 20190810

REACTIONS (2)
  - Suicide attempt [Unknown]
  - Intentional overdose [Unknown]

NARRATIVE: CASE EVENT DATE: 20190810
